FAERS Safety Report 20001598 (Version 2)
Quarter: 2021Q4

REPORT INFORMATION
  Report Type: Report from Study
  Country: US (occurrence: US)
  Receive Date: 20211027
  Receipt Date: 20211111
  Transmission Date: 20220303
  Serious: No
  Sender: FDA-Public Use
  Company Number: US-NOVARTISPH-NVSC2021US240356

PATIENT
  Age: 3 Month
  Sex: Male
  Weight: 6.7 kg

DRUGS (8)
  1. ZOLGENSMA [Suspect]
     Active Substance: ONASEMNOGENE ABEPARVOVEC-XIOI
     Indication: Spinal muscular atrophy
     Dosage: 35.8 ML, ONCE/SINGLE (1.1 X E14VG/KG)
     Route: 042
     Dates: start: 20210428, end: 20210428
  2. PREDNISOLONE [Concomitant]
     Active Substance: PREDNISOLONE
     Indication: Product used for unknown indication
     Dosage: 2 ML
     Route: 065
     Dates: start: 20210427, end: 20210602
  3. PREDNISOLONE [Concomitant]
     Active Substance: PREDNISOLONE
     Dosage: 1.5 ML
     Route: 065
     Dates: start: 20210603, end: 20210609
  4. PREDNISOLONE [Concomitant]
     Active Substance: PREDNISOLONE
     Dosage: 1 ML
     Route: 065
     Dates: start: 20210610, end: 20210616
  5. PREDNISOLONE [Concomitant]
     Active Substance: PREDNISOLONE
     Dosage: 0.5 ML
     Route: 065
     Dates: start: 20210617, end: 20210623
  6. PREDNISOLONE [Concomitant]
     Active Substance: PREDNISOLONE
     Dosage: 0.25 ML
     Route: 065
     Dates: start: 20210624, end: 20210701
  7. PREDNISOLONE [Concomitant]
     Active Substance: PREDNISOLONE
     Dosage: 0.75 MG
     Route: 065
     Dates: start: 20210421, end: 20210630
  8. PEPCID [Concomitant]
     Active Substance: FAMOTIDINE
     Indication: Product used for unknown indication
     Dosage: 8 MG/ML
     Route: 065
     Dates: start: 20210421

REACTIONS (7)
  - Troponin I increased [Recovered/Resolved]
  - Hypercalcaemia [Recovered/Resolved]
  - Aspartate aminotransferase increased [Recovered/Resolved]
  - Alanine aminotransferase increased [Recovered/Resolved]
  - Pyrexia [Recovered/Resolved]
  - Thrombocytosis [Recovered/Resolved]
  - Thrombocytosis [Recovered/Resolved]

NARRATIVE: CASE EVENT DATE: 20210428
